FAERS Safety Report 4474631-7 (Version None)
Quarter: 2004Q4

REPORT INFORMATION
  Report Type: 
  Country: None (occurrence: None)
  Receive Date: 20041012
  Receipt Date: 20040928
  Transmission Date: 20050328
  Serious: Yes (Other)
  Sender: FDA-Public Use
  Company Number: 2004236398BE

PATIENT
  Age: 64 Year
  Sex: Female

DRUGS (1)
  1. AROMASIN [Suspect]
     Indication: BREAST CANCER METASTATIC
     Dosage: 25 MG, QD, ORAL
     Route: 048

REACTIONS (2)
  - BREAST CANCER RECURRENT [None]
  - THROMBOCYTOPENIA [None]
